FAERS Safety Report 9314557 (Version 1)
Quarter: 2013Q2

REPORT INFORMATION
  Report Type: Spontaneous
  Country: CH (occurrence: None)
  Receive Date: 20130524
  Receipt Date: 20130524
  Transmission Date: 20140414
  Serious: Yes (Other)
  Sender: FDA-Public Use
  Company Number: SYM-2013-04216

PATIENT
  Age: 3 Year
  Sex: Male

DRUGS (3)
  1. PREDNITOP (PREDNICARBATE) (PREDNICARBATE) [Suspect]
     Indication: DERMATITIS CONTACT
     Dates: start: 20130401, end: 20130401
  2. INSULIN (INSULIN) (INSULIN) [Concomitant]
  3. CORTICOSTEROID NOS (COSTICOSTEROID NOS) (CORTICOSTEROID NOS) [Concomitant]

REACTIONS (1)
  - Blood glucose fluctuation [None]
